FAERS Safety Report 8472900-7 (Version None)
Quarter: 2012Q2

REPORT INFORMATION
  Report Type: 
  Country: None (occurrence: None)
  Receive Date: 20120627
  Receipt Date: 20120619
  Transmission Date: 20120825
  Serious: Yes (Other)
  Sender: FDA-Public Use
  Company Number: GB-B.I. PHARMACEUTICALS,INC./RIDGEFIELD-2012-UK-00817UK

PATIENT
  Sex: Male

DRUGS (2)
  1. RUXOLITINIB [Concomitant]
  2. FLOMAX [Suspect]
     Indication: BENIGN PROSTATIC HYPERPLASIA
     Dosage: 400 MCG

REACTIONS (2)
  - TOOTH DISORDER [None]
  - TOOTH LOSS [None]
